FAERS Safety Report 24696602 (Version 1)
Quarter: 2024Q4

REPORT INFORMATION
  Report Type: Spontaneous
  Country: PT (occurrence: PT)
  Receive Date: 20241204
  Receipt Date: 20241204
  Transmission Date: 20250115
  Serious: Yes (Hospitalization, Other)
  Sender: MYLAN
  Company Number: PT-MEDAC-2024-AER-04827

PATIENT
  Age: 72 Year
  Sex: Male

DRUGS (2)
  1. METHOTREXATE [Suspect]
     Active Substance: METHOTREXATE
     Indication: Polymyalgia rheumatica
     Dosage: UNK (AS STEROID-SPARING AGENT, UP TO A MAXIMUM DOSE OF 20 MG WEEKLY)
     Route: 065
  2. PREDNISOLONE [Concomitant]
     Active Substance: PREDNISOLONE
     Indication: Polymyalgia rheumatica
     Dosage: UNK (SYMPTOMS KEPT ON RELAPSING FOR DOSES OF PREDNISOLONE UNDER 10MG DAILY)
     Route: 065

REACTIONS (1)
  - Whipple^s disease [Recovering/Resolving]
